FAERS Safety Report 8265004-X (Version None)
Quarter: 2012Q2

REPORT INFORMATION
  Report Type: 
  Country: None (occurrence: None)
  Receive Date: 20120406
  Receipt Date: 20120330
  Transmission Date: 20120825
  Serious: Yes (Hospitalization)
  Sender: FDA-Public Use
  Company Number: FR-SANOFI-AVENTIS-2012SA022550

PATIENT
  Age: 70 Year
  Sex: Female

DRUGS (12)
  1. VITAMIN B1 TAB [Concomitant]
     Route: 048
  2. LOVENOX [Suspect]
     Route: 058
     Dates: start: 20120210
  3. PANTOPRAZOLE [Suspect]
     Route: 042
     Dates: start: 20120210, end: 20120214
  4. VITAMIN B6 [Concomitant]
     Route: 048
  5. LAMOTRGINE [Concomitant]
     Route: 048
  6. FLAGYL [Suspect]
     Route: 048
     Dates: start: 20120211, end: 20120216
  7. CIPROFLOXACIN HYDROCHLORIDE [Suspect]
     Route: 048
     Dates: start: 20120214
  8. ATORVASTATIN [Concomitant]
     Route: 048
  9. CIPROFLOXACIN HYDROCHLORIDE [Suspect]
     Route: 042
     Dates: start: 20120210, end: 20120214
  10. PANTOPRAZOLE [Suspect]
     Route: 048
     Dates: start: 20120214
  11. SPASFON [Concomitant]
     Route: 048
  12. SMECTITE [Concomitant]
     Route: 048

REACTIONS (2)
  - TRANSAMINASES INCREASED [None]
  - CYTOLYTIC HEPATITIS [None]
